FAERS Safety Report 12425595 (Version 5)
Quarter: 2016Q4

REPORT INFORMATION
  Report Type: Report from Study
  Country: AR (occurrence: AR)
  Receive Date: 20160601
  Receipt Date: 20161129
  Transmission Date: 20170207
  Serious: Yes (Hospitalization, Other)
  Sender: FDA-Public Use
  Company Number: PHHY2016AR075717

PATIENT
  Age: 67 Year
  Sex: Female

DRUGS (7)
  1. VILANTEROL [Concomitant]
     Indication: ASTHMA
     Route: 065
  2. BETAHISTINE [Concomitant]
     Active Substance: BETAHISTINE
     Indication: VERTIGO
  3. SEEBRI BREEZHALER [Suspect]
     Active Substance: GLYCOPYRROLATE
     Indication: ASTHMA
  4. FLUTICASONE FUROATE [Concomitant]
     Active Substance: FLUTICASONE FUROATE
     Indication: ASTHMA
     Route: 065
  5. BETAHISTINE [Concomitant]
     Active Substance: BETAHISTINE
     Indication: INNER EAR DISORDER
     Dosage: 16 MG, QD
     Route: 065
  6. SEEBRI BREEZHALER [Suspect]
     Active Substance: GLYCOPYRROLATE
     Indication: CHRONIC OBSTRUCTIVE PULMONARY DISEASE
     Dosage: 1 DF, QD
     Route: 065
  7. SEEBRI BREEZHALER [Suspect]
     Active Substance: GLYCOPYRROLATE
     Indication: BRONCHIECTASIS

REACTIONS (16)
  - Blood sodium decreased [Recovered/Resolved]
  - Hypertension [Not Recovered/Not Resolved]
  - Arrhythmia [Unknown]
  - Bronchitis [Unknown]
  - Visual field defect [Recovered/Resolved]
  - Cerebrovascular accident [Recovered/Resolved]
  - Aspergillus infection [Unknown]
  - Dizziness [Unknown]
  - Malaise [Not Recovered/Not Resolved]
  - Product use issue [Unknown]
  - Drug dependence [Unknown]
  - Musculoskeletal discomfort [Unknown]
  - Visual acuity reduced [Recovering/Resolving]
  - Bronchial disorder [Not Recovered/Not Resolved]
  - Asthenopia [Recovered/Resolved]
  - Memory impairment [Unknown]

NARRATIVE: CASE EVENT DATE: 201602
